FAERS Safety Report 6433270-9 (Version None)
Quarter: 2009Q4

REPORT INFORMATION
  Report Type: 
  Country: None (occurrence: None)
  Receive Date: 20091109
  Receipt Date: 20091103
  Transmission Date: 20100525
  Serious: Yes (Death)
  Sender: FDA-Public Use
  Company Number: US-GILEAD-2009-0025212

PATIENT
  Sex: Male

DRUGS (9)
  1. LETAIRIS [Suspect]
     Indication: PULMONARY ARTERIAL HYPERTENSION
     Route: 048
     Dates: start: 20090311, end: 20091015
  2. PREVACID [Concomitant]
  3. PULMICORT [Concomitant]
  4. COMBIVENT [Concomitant]
  5. REVATIO [Concomitant]
  6. WARFARIN SODIUM [Concomitant]
  7. SIMVASTATIN [Concomitant]
  8. LEXAPRO [Concomitant]
  9. VITAMIN E [Concomitant]

REACTIONS (1)
  - DEATH [None]
